FAERS Safety Report 8134804-9 (Version None)
Quarter: 2012Q1

REPORT INFORMATION
  Report Type: 
  Country: None (occurrence: None)
  Receive Date: 20120214
  Receipt Date: 20120201
  Transmission Date: 20120608
  Serious: Yes (Hospitalization)
  Sender: FDA-Public Use
  Company Number: US-JNJFOC-20120203203

PATIENT
  Sex: Male
  Weight: 6.64 kg

DRUGS (3)
  1. PLACEBO [Suspect]
     Indication: KAWASAKI'S DISEASE
     Route: 042
     Dates: start: 20120128, end: 20120128
  2. IMMUNE GLOBULIN INTRAVENOUS (HUMAN) [Concomitant]
     Indication: KAWASAKI'S DISEASE
     Route: 042
  3. BLINDED; INFLIXIMAB, RECOMBINANT [Suspect]
     Indication: KAWASAKI'S DISEASE
     Route: 042
     Dates: start: 20120128, end: 20120128

REACTIONS (1)
  - CORONARY ARTERY DILATATION [None]
